FAERS Safety Report 9149958 (Version 1)
Quarter: 2013Q1

REPORT INFORMATION
  Report Type: Spontaneous
  Country: US (occurrence: None)
  Receive Date: 20130301
  Receipt Date: 20130301
  Transmission Date: 20140127
  Serious: Yes (Other)
  Sender: FDA-Public Use
  Company Number: None

PATIENT
  Sex: 0

DRUGS (2)
  1. VENLAFAXINE [Suspect]
     Indication: ANXIETY
     Dosage: 150 MG  ONCE/DAY  PO
     Route: 048
  2. VENLAFAXINE [Suspect]

REACTIONS (3)
  - Drug effect decreased [None]
  - Product substitution issue [None]
  - Product substitution issue [None]
